FAERS Safety Report 8926011 (Version 1)
Quarter: 2012Q4

REPORT INFORMATION
  Report Type: 
  Country: US (occurrence: US)
  Receive Date: 20121126
  Receipt Date: 20121126
  Transmission Date: 20130627
  Serious: Yes (Hospitalization)
  Sender: FDA-Public Use
  Company Number: US-BAYER-2012-119844

PATIENT
  Age: 17 Year
  Sex: Female

DRUGS (5)
  1. YAZ [Suspect]
  2. OCELLA [Suspect]
     Dosage: UNK
     Dates: start: 20110218, end: 20111005
  3. VALIUM [Concomitant]
  4. PERCOCET [Concomitant]
  5. VICODIN [Concomitant]

REACTIONS (6)
  - Pulmonary embolism [None]
  - Chest pain [None]
  - Haemoptysis [None]
  - Pleural effusion [None]
  - Anxiety [None]
  - Emotional distress [None]
